FAERS Safety Report 7442203-8 (Version None)
Quarter: 2011Q2

REPORT INFORMATION
  Report Type: 
  Country: None (occurrence: None)
  Receive Date: 20110428
  Receipt Date: 20110421
  Transmission Date: 20111010
  Serious: Yes (Other)
  Sender: FDA-Public Use
  Company Number: US-SANOFI-AVENTIS-2011SA025506

PATIENT
  Age: 53 Year
  Sex: Male

DRUGS (5)
  1. SINGULAIR [Concomitant]
     Dosage: AT 9PM
  2. PREDNISONE [Concomitant]
  3. ASPIRIN [Concomitant]
  4. ALLEGRA [Suspect]
     Indication: ASTHMA
     Dosage: AT 9AM
     Route: 048
  5. TACROLIMUS [Concomitant]
     Indication: IMMUNOSUPPRESSANT DRUG THERAPY

REACTIONS (1)
  - LYMPHOMA [None]
